FAERS Safety Report 7294033-8 (Version None)
Quarter: 2011Q1

REPORT INFORMATION
  Report Type: 
  Country: None (occurrence: None)
  Receive Date: 20110215
  Receipt Date: 20110208
  Transmission Date: 20110831
  Serious: Yes (Hospitalization)
  Sender: FDA-Public Use
  Company Number: US-US-EMD SERONO, INC.-230938J10USA

PATIENT
  Sex: Female

DRUGS (4)
  1. REBIF [Suspect]
     Indication: MULTIPLE SCLEROSIS
     Route: 058
     Dates: start: 20090403
  2. UNSPECIFIED BLOOD PRESSURE MEDICATION [Concomitant]
     Indication: BLOOD PRESSURE ABNORMAL
  3. SYNTHROID [Concomitant]
  4. UNSPECIFIED ANTIBIOTIC [Concomitant]
     Indication: PROPHYLAXIS URINARY TRACT INFECTION

REACTIONS (5)
  - ANAEMIA [None]
  - INJECTION SITE REACTION [None]
  - JOINT SWELLING [None]
  - CHILLS [None]
  - POST PROCEDURAL COMPLICATION [None]
